FAERS Safety Report 7461940-2 (Version None)
Quarter: 2011Q2

REPORT INFORMATION
  Report Type: 
  Country: None (occurrence: None)
  Receive Date: 20110506
  Receipt Date: 20110419
  Transmission Date: 20111010
  Serious: Yes (Hospitalization)
  Sender: FDA-Public Use
  Company Number: US-BAYER-2011-033754

PATIENT
  Age: 37 Year
  Sex: Male

DRUGS (2)
  1. ACETYLSALICYLIC ACID SRT [Suspect]
     Indication: ATRIAL FIBRILLATION
     Dosage: 325 MG, ONCE
     Route: 065
  2. ACETYLSALICYLIC ACID + DEXTROMETHORPHAN + DOXYLAMINE + PHENYLEPHRINE [Suspect]
     Indication: UPPER RESPIRATORY TRACT INFECTION
     Dosage: UNK, ONCE
     Route: 048

REACTIONS (10)
  - ANAPHYLACTIC REACTION [None]
  - ATRIAL FIBRILLATION [None]
  - HYPOTENSION [None]
  - VENTRICULAR TACHYCARDIA [None]
  - ERYTHEMA [None]
  - PRESYNCOPE [None]
  - FLUSHING [None]
  - HYPERHIDROSIS [None]
  - CHEST DISCOMFORT [None]
  - VOMITING [None]
